FAERS Safety Report 9491229 (Version 1)
Quarter: 2013Q3

REPORT INFORMATION
  Report Type: Spontaneous
  Country: DK (occurrence: DK)
  Receive Date: 20130830
  Receipt Date: 20130830
  Transmission Date: 20140515
  Serious: Yes (Other)
  Sender: FDA-Public Use
  Company Number: DK-PFIZER INC-2013247501

PATIENT
  Age: 44 Year
  Sex: Female

DRUGS (1)
  1. RELPAX [Suspect]
     Indication: MIGRAINE
     Dosage: TWO (40 MG TABLETS) AT THE SAME TIME
     Route: 048

REACTIONS (1)
  - Rectal haemorrhage [Unknown]
